FAERS Safety Report 23664971 (Version 1)
Quarter: 2024Q1

REPORT INFORMATION
  Report Type: Report from Study
  Country: US (occurrence: US)
  Receive Date: 20240322
  Receipt Date: 20240322
  Transmission Date: 20240410
  Serious: Yes (Other)
  Sender: FDA-Public Use
  Company Number: US-ABBVIE-5577608

PATIENT
  Sex: Male

DRUGS (2)
  1. HUMIRA [Suspect]
     Active Substance: ADALIMUMAB
     Indication: Product used for unknown indication
     Route: 058
     Dates: start: 20240106
  2. HUMIRA [Suspect]
     Active Substance: ADALIMUMAB
     Route: 058
     Dates: start: 20090101

REACTIONS (4)
  - Cerebrovascular accident [Recovering/Resolving]
  - Atrial fibrillation [Unknown]
  - Leukoencephalopathy [Unknown]
  - Dementia [Unknown]

NARRATIVE: CASE EVENT DATE: 20150101
